FAERS Safety Report 5621265-4 (Version None)
Quarter: 2008Q1

REPORT INFORMATION
  Report Type: 
  Country: None (occurrence: None)
  Receive Date: 20080211
  Receipt Date: 20080205
  Transmission Date: 20080703
  Serious: Yes (Hospitalization)
  Sender: FDA-Public Use
  Company Number: US-TEVA-167190USA

PATIENT
  Age: 56 Year
  Sex: Female

DRUGS (4)
  1. CALCIUM FOLINATE 100 MG BASE/VIAL [Suspect]
     Indication: COLON CANCER STAGE III
     Dosage: 730 MG/TOTAL
     Route: 042
     Dates: start: 20070822, end: 20070822
  2. FLUOROURACIL [Suspect]
     Indication: COLON CANCER STAGE III
     Dosage: 5130MG/TOTAL
     Route: 042
     Dates: start: 20070822, end: 20070822
  3. CETUXIMAB [Suspect]
     Indication: COLON CANCER STAGE III
     Dosage: 730 MG/TOTAL
     Route: 042
     Dates: start: 20070822, end: 20070822
  4. OXALIPLATIN [Suspect]
     Indication: COLON CANCER STAGE III
     Dosage: 156MG/TOTAL
     Route: 042
     Dates: start: 20070822, end: 20070822

REACTIONS (1)
  - PULMONARY EMBOLISM [None]
